FAERS Safety Report 12238555 (Version 1)
Quarter: 2016Q2

REPORT INFORMATION
  Report Type: Spontaneous
  Country: US (occurrence: US)
  Receive Date: 20160405
  Receipt Date: 20160405
  Transmission Date: 20160815
  Serious: No
  Sender: FDA-Public Use
  Company Number: US-PFIZER INC-2016178989

PATIENT
  Sex: Female

DRUGS (1)
  1. SULFASALAZINE. [Suspect]
     Active Substance: SULFASALAZINE
     Indication: RHEUMATOID ARTHRITIS
     Dosage: 50 MG, 1X/DAY
     Route: 048
     Dates: start: 2015, end: 20160101

REACTIONS (1)
  - Productive cough [Recovered/Resolved]

NARRATIVE: CASE EVENT DATE: 201512
